FAERS Safety Report 4598062-4 (Version None)
Quarter: 2005Q1

REPORT INFORMATION
  Report Type: 
  Country: None (occurrence: None)
  Receive Date: 20050304
  Receipt Date: 20041215
  Transmission Date: 20050727
  Serious: Yes (Other)
  Sender: FDA-Public Use
  Company Number: US-JNJFOC-20041201501

PATIENT
  Sex: Female
  Weight: 63.5 kg

DRUGS (10)
  1. REMICADE [Suspect]
     Indication: CROHN'S DISEASE
     Route: 042
  2. LIPITOR [Suspect]
     Indication: DRUG USE FOR UNKNOWN INDICATION
  3. COLAZAL [Concomitant]
     Indication: CROHN'S DISEASE
  4. PEPCID [Concomitant]
  5. KLONIPIN [Concomitant]
     Indication: ANXIETY
  6. BUSPAR [Concomitant]
     Indication: ANXIETY
  7. LIDODERM [Concomitant]
  8. BINOTAL [Concomitant]
  9. CYCLOBENZ [Concomitant]
     Indication: FIBROMYALGIA
  10. DYNOTAL [Concomitant]
     Indication: DIARRHOEA

REACTIONS (4)
  - ADVERSE DRUG REACTION [None]
  - RASH ERYTHEMATOUS [None]
  - SPONDYLITIS [None]
  - SUICIDAL IDEATION [None]
